FAERS Safety Report 19861487 (Version 1)
Quarter: 2021Q3

REPORT INFORMATION
  Report Type: Report from Study
  Country: US (occurrence: US)
  Receive Date: 20210920
  Receipt Date: 20210920
  Transmission Date: 20211014
  Serious: Yes (Death, Other)
  Sender: FDA-Public Use
  Company Number: US-PFIZER INC-202101205277

PATIENT
  Sex: Female

DRUGS (2)
  1. PACLITAXEL. [Suspect]
     Active Substance: PACLITAXEL
     Indication: TRIPLE NEGATIVE BREAST CANCER
     Dosage: 80 MG/M2, ON DAYS 1, 8, AND 15 OF 28?DAY CYCLES
  2. REPARIXIN. [Suspect]
     Active Substance: REPARIXIN
     Indication: TRIPLE NEGATIVE BREAST CANCER
     Dosage: 1200 MG, T.I.D. FROM DAY 1 TO 21 OF 28?DAY CYCLES
     Route: 048

REACTIONS (2)
  - Peritonitis [Fatal]
  - Intestinal perforation [Fatal]
